FAERS Safety Report 10285619 (Version 1)
Quarter: 2014Q3

REPORT INFORMATION
  Report Type: Spontaneous
  Country: US (occurrence: US)
  Receive Date: 20140709
  Receipt Date: 20140709
  Transmission Date: 20150326
  Serious: No
  Sender: FDA-Public Use
  Company Number: US-BIOGENIDEC-2014BI065689

PATIENT

DRUGS (1)
  1. AVONEX [Suspect]
     Active Substance: INTERFERON BETA-1A
     Indication: MULTIPLE SCLEROSIS
     Route: 030
     Dates: start: 20060601, end: 20080123

REACTIONS (5)
  - Feeling abnormal [Recovered/Resolved]
  - Discomfort [Recovered/Resolved]
  - Influenza like illness [Recovered/Resolved]
  - Hyperhidrosis [Recovered/Resolved]
  - Mobility decreased [Recovered/Resolved]
